FAERS Safety Report 25748239 (Version 2)
Quarter: 2025Q3

REPORT INFORMATION
  Report Type: Spontaneous
  Country: US (occurrence: US)
  Receive Date: 20250902
  Receipt Date: 20250918
  Transmission Date: 20251020
  Serious: No
  Sender: ABBVIE
  Company Number: US-ABBVIE-6439370

PATIENT
  Sex: Female

DRUGS (1)
  1. REFRESH CELLUVISC [Suspect]
     Active Substance: CARBOXYMETHYLCELLULOSE SODIUM
     Indication: Dry eye
     Dosage: PRESERVATIVE FREE, 1 DROP PER EYE DAILY, PATIENT ROA: OPHTHALMIC
     Route: 065
     Dates: start: 202509

REACTIONS (1)
  - Ocular procedural complication [Unknown]

NARRATIVE: CASE EVENT DATE: 20250901
